FAERS Safety Report 21328117 (Version 1)
Quarter: 2022Q3

REPORT INFORMATION
  Report Type: Spontaneous
  Country: US (occurrence: None)
  Receive Date: 20220912
  Receipt Date: 20220912
  Transmission Date: 20221026
  Serious: Yes (Disabling)
  Sender: FDA-Public Use
  Company Number: None

PATIENT
  Age: 13 Day
  Sex: Female

DRUGS (1)
  1. ICY HOT LIDOCAINE DRY [Suspect]
     Active Substance: LIDOCAINE\MENTHOL
     Indication: Arthralgia
     Route: 061
     Dates: start: 20220908, end: 20220909

REACTIONS (2)
  - Pain [None]
  - Inflammation [None]

NARRATIVE: CASE EVENT DATE: 20220909
